FAERS Safety Report 19741937 (Version 3)
Quarter: 2021Q4

REPORT INFORMATION
  Report Type: Report from Study
  Country: US (occurrence: US)
  Receive Date: 20210824
  Receipt Date: 20211206
  Transmission Date: 20220303
  Serious: No
  Sender: FDA-Public Use
  Company Number: NVSC2021US179156

PATIENT
  Sex: Female

DRUGS (2)
  1. TABRECTA [Suspect]
     Active Substance: CAPMATINIB
     Indication: Product used for unknown indication
     Dosage: UNK(FROM 4 PILLS PER DAY TO 2 PILLS PER DAY)
     Route: 048
  2. TABRECTA [Suspect]
     Active Substance: CAPMATINIB
     Dosage: UNK(1 PILL IN AM AND 1 PILL IN PM)
     Route: 048

REACTIONS (5)
  - Dehydration [Unknown]
  - Bone disorder [Unknown]
  - Enzyme level increased [Unknown]
  - Malaise [Recovered/Resolved]
  - Diarrhoea [Unknown]
